FAERS Safety Report 20693526 (Version 8)
Quarter: 2022Q4

REPORT INFORMATION
  Report Type: Report from Study
  Country: US (occurrence: US)
  Receive Date: 20220411
  Receipt Date: 20221111
  Transmission Date: 20230113
  Serious: Yes (Other)
  Sender: FDA-Public Use
  Company Number: US-TAKEDA-2022TUS007101

PATIENT
  Sex: Male
  Weight: 67 kg

DRUGS (34)
  1. GLASSIA [Suspect]
     Active Substance: .ALPHA.1-PROTEINASE INHIBITOR HUMAN
     Indication: Alpha-1 antitrypsin deficiency
     Dosage: 60 MILLIGRAM/KILOGRAM, 1/WEEK
     Route: 042
     Dates: start: 20211124
  2. GLASSIA [Suspect]
     Active Substance: .ALPHA.1-PROTEINASE INHIBITOR HUMAN
     Indication: Alpha-1 antitrypsin deficiency
     Dosage: 60 MILLIGRAM/KILOGRAM, 1/WEEK
     Route: 042
     Dates: start: 20211124
  3. GLASSIA [Suspect]
     Active Substance: .ALPHA.1-PROTEINASE INHIBITOR HUMAN
     Dosage: 60 MILLIGRAM/KILOGRAM, 1/WEEK
     Route: 042
  4. GLASSIA [Suspect]
     Active Substance: .ALPHA.1-PROTEINASE INHIBITOR HUMAN
     Dosage: 60 MILLIGRAM/KILOGRAM, 1/WEEK
     Route: 042
  5. SILDENAFIL [Suspect]
     Active Substance: SILDENAFIL
     Indication: Pulmonary arterial hypertension
     Dosage: UNK
     Route: 065
  6. DIPHENHYDRAMINE [Concomitant]
     Active Substance: DIPHENHYDRAMINE
  7. BUDESONIDE [Concomitant]
     Active Substance: BUDESONIDE
  8. DALIRESP [Concomitant]
     Active Substance: ROFLUMILAST
  9. TRAVATAN [Concomitant]
     Active Substance: TRAVOPROST
  10. EPINEPHRINE [Concomitant]
     Active Substance: EPINEPHRINE
  11. SODIUM CHLORIDE [Concomitant]
     Active Substance: SODIUM CHLORIDE
  12. AZITHROMYCIN [Concomitant]
     Active Substance: AZITHROMYCIN
  13. YUPELRI [Concomitant]
     Active Substance: REVEFENACIN
  14. GAMUNEX-C [Concomitant]
     Active Substance: HUMAN IMMUNOGLOBULIN G
  15. ATORVASTATIN CALCIUM [Concomitant]
     Active Substance: ATORVASTATIN CALCIUM
  16. LIDOCAINE\PRILOCAINE [Concomitant]
     Active Substance: LIDOCAINE\PRILOCAINE
     Dosage: UNK
  17. ZYRTEC [Concomitant]
     Active Substance: CETIRIZINE HYDROCHLORIDE
  18. SALINE [Concomitant]
     Active Substance: SODIUM CHLORIDE
  19. ASPIRIN [Concomitant]
     Active Substance: ASPIRIN
  20. OXYGEN [Concomitant]
     Active Substance: OXYGEN
  21. PERFOROMIST [Concomitant]
     Active Substance: FORMOTEROL FUMARATE DIHYDRATE
  22. ARANESP [Concomitant]
     Active Substance: DARBEPOETIN ALFA
  23. HEPARIN [Concomitant]
     Active Substance: HEPARIN SODIUM
  24. SHINGRIX [Concomitant]
     Active Substance: RECOMBINANT VARICELLA ZOSTER VIRUS (VZV) GLYCOPROTEIN E
  25. MYRBETRIQ [Concomitant]
     Active Substance: MIRABEGRON
  26. MINERALS\VITAMINS [Concomitant]
     Active Substance: MINERALS\VITAMINS
  27. PREDNISONE [Concomitant]
     Active Substance: PREDNISONE
  28. FERROUS SULFATE [Concomitant]
     Active Substance: FERROUS SULFATE
  29. ACIDOPHILUS [Concomitant]
     Active Substance: LACTOBACILLUS ACIDOPHILUS
  30. FERROUS SULFATE [Concomitant]
     Active Substance: FERROUS SULFATE
  31. TROSPIUM CHLORIDE [Concomitant]
     Active Substance: TROSPIUM CHLORIDE
  32. TOLTERODINE TARTRATE [Concomitant]
     Active Substance: TOLTERODINE TARTRATE
  33. MEGESTROL ACETATE [Concomitant]
     Active Substance: MEGESTROL ACETATE
  34. SILDENAFIL CITRATE [Concomitant]
     Active Substance: SILDENAFIL CITRATE

REACTIONS (11)
  - Basal cell carcinoma [Unknown]
  - Pulmonary arterial hypertension [Unknown]
  - Infusion site bruising [Unknown]
  - Exercise tolerance decreased [Unknown]
  - Condition aggravated [Unknown]
  - Dyspnoea exertional [Unknown]
  - Skin laceration [Unknown]
  - Fall [Unknown]
  - Seasonal allergy [Unknown]
  - Blood pressure decreased [Unknown]
  - Dizziness postural [Unknown]
